FAERS Safety Report 11627657 (Version 1)
Quarter: 2015Q4

REPORT INFORMATION
  Report Type: Spontaneous
  Country: US (occurrence: US)
  Receive Date: 20151014
  Receipt Date: 20151014
  Transmission Date: 20160304
  Serious: Yes (Other)
  Sender: FDA-Public Use
  Company Number: US-ALVOGEN-2015-ALVOGEN-018594

PATIENT
  Age: 66 Year
  Sex: Female

DRUGS (3)
  1. BACTRIM [Suspect]
     Active Substance: SULFAMETHOXAZOLE\TRIMETHOPRIM
     Indication: INFECTION
     Dosage: 25/50
     Route: 048
     Dates: start: 200508, end: 20050910
  2. ATENOLOL. [Suspect]
     Active Substance: ATENOLOL
     Indication: HYPERTENSION
     Route: 048
     Dates: start: 20051215, end: 200805
  3. HYDROCHLOROTHIAZIDE AND LISINOPRIL [Suspect]
     Active Substance: HYDROCHLOROTHIAZIDE\LISINOPRIL
     Indication: PRODUCT USED FOR UNKNOWN INDICATION
     Dosage: 10/12.5 MG
     Route: 048
     Dates: start: 200203, end: 20051123

REACTIONS (7)
  - Speech disorder [Recovering/Resolving]
  - Hearing impaired [Recovered/Resolved]
  - Cerebrovascular accident [Recovered/Resolved]
  - Tinnitus [Recovering/Resolving]
  - Headache [Recovering/Resolving]
  - Balance disorder [Not Recovered/Not Resolved]
  - Drug interaction [Unknown]

NARRATIVE: CASE EVENT DATE: 2005
